FAERS Safety Report 8700531 (Version 2)
Quarter: 2013Q1

REPORT INFORMATION
  Report Type: Spontaneous
  Country: US (occurrence: US)
  Receive Date: 20120802
  Receipt Date: 20130311
  Transmission Date: 20140127
  Serious: No
  Sender: FDA-Public Use
  Company Number: US-ASTRAZENECA-2012SE51322

PATIENT
  Sex: Female

DRUGS (8)
  1. SEROQUEL [Suspect]
     Indication: INSOMNIA
     Route: 048
     Dates: end: 2011
  2. SEROQUEL [Suspect]
     Indication: DEPRESSION
     Route: 048
     Dates: end: 2011
  3. SEROQUEL [Suspect]
     Indication: INSOMNIA
     Dosage: GENERIC
     Route: 048
  4. SEROQUEL [Suspect]
     Indication: DEPRESSION
     Dosage: GENERIC
     Route: 048
  5. AMBIEN [Concomitant]
  6. BENADRYL [Concomitant]
  7. LITHIUM [Concomitant]
  8. TRAZODONE [Concomitant]

REACTIONS (11)
  - Glossodynia [Unknown]
  - Lip disorder [Unknown]
  - Oropharyngeal discomfort [Recovered/Resolved]
  - Tongue disorder [Unknown]
  - Lip dry [Not Recovered/Not Resolved]
  - Glossitis [Not Recovered/Not Resolved]
  - Glossodynia [Not Recovered/Not Resolved]
  - Dysarthria [Unknown]
  - Swollen tongue [Unknown]
  - Off label use [Unknown]
  - Drug dose omission [Unknown]
